FAERS Safety Report 4441289-2 (Version None)
Quarter: 2004Q3

REPORT INFORMATION
  Report Type: 
  Country: None (occurrence: None)
  Receive Date: 20040728
  Receipt Date: 20040505
  Transmission Date: 20050211
  Serious: No
  Sender: FDA-Public Use
  Company Number: USA040566825

PATIENT
  Age: 6 Year
  Sex: Female

DRUGS (3)
  1. STRATTERA [Suspect]
     Dosage: 20 MG DAY
     Dates: start: 20030101
  2. PULMICORT [Concomitant]
  3. ALBUTEROL [Concomitant]

REACTIONS (2)
  - POLLAKIURIA [None]
  - URINARY INCONTINENCE [None]
